FAERS Safety Report 15028675 (Version 11)
Quarter: 2018Q4

REPORT INFORMATION
  Report Type: Report from Study
  Country: CH (occurrence: CH)
  Receive Date: 20180619
  Receipt Date: 20181030
  Transmission Date: 20190204
  Serious: Yes (Other)
  Sender: FDA-Public Use
  Company Number: CH-ROCHE-2137487

PATIENT
  Age: 60 Year
  Sex: Male
  Weight: 76 kg

DRUGS (44)
  1. OCRELIZUMAB. [Suspect]
     Active Substance: OCRELIZUMAB
     Dosage: OLE-WEEK 24
     Route: 042
     Dates: start: 20140924, end: 20140924
  2. DAFALGAN [Concomitant]
     Active Substance: ACETAMINOPHEN
     Dosage: SUBSEQUENTLY RECEIVED ON 28/MAR/2013, 26/SEP/2013, 20/MAR/2014, 03/APR/2014, 24/SEP/2014, 25/FEB/201
     Route: 065
     Dates: start: 20121016
  3. VANNAIR [Concomitant]
     Active Substance: BUDESONIDE\FORMOTEROL FUMARATE DIHYDRATE
     Indication: ASTHMA
     Dosage: VANNAIR SPRAY 200/6?2 SPRAY
     Route: 065
     Dates: start: 20161107
  4. PLACEBO [Suspect]
     Active Substance: UNSPECIFIED INGREDIENT
     Indication: RELAPSING-REMITTING MULTIPLE SCLEROSIS
     Dosage: WEEK 1
     Route: 042
     Dates: start: 20120423, end: 20120423
  5. OCRELIZUMAB. [Suspect]
     Active Substance: OCRELIZUMAB
     Indication: RELAPSING-REMITTING MULTIPLE SCLEROSIS
     Dosage: OLE-WEEK 0?ADMINISTERED AS 300 MG (260 ML) ON DAY 1 OF CYCLE 5, FOLLOWED BY 600 MG SINGLE INFUSION F
     Route: 042
     Dates: start: 20140320, end: 20140320
  6. SILDENAFIL. [Concomitant]
     Active Substance: SILDENAFIL
     Indication: ERECTILE DYSFUNCTION
     Route: 065
     Dates: start: 20150225
  7. CONCOR [Concomitant]
     Active Substance: BISOPROLOL FUMARATE
     Route: 065
     Dates: start: 20150225, end: 20150816
  8. OCRELIZUMAB. [Suspect]
     Active Substance: OCRELIZUMAB
     Dosage: OLE-WEEK 120
     Route: 042
     Dates: start: 20160711, end: 20160711
  9. OCRELIZUMAB. [Suspect]
     Active Substance: OCRELIZUMAB
     Dosage: OLE-WEEK 192
     Route: 042
     Dates: start: 20171127, end: 20171127
  10. METHYLPREDNISOLONE. [Concomitant]
     Active Substance: METHYLPREDNISOLONE
     Dosage: SUBSEQUENTLY RECEIVED ON 11/MAY/2012, 16/OCT/2012, 28/MAR/2013, 26/SEP/2013, 20/MAR/2014, 03/APR/201
     Route: 065
     Dates: start: 20120423, end: 20120423
  11. TAVEGYL [Concomitant]
     Active Substance: CLEMASTINE FUMARATE
     Dosage: SUBSEQUENTLY RECEIVED ON 28/MAR/2013, 26/SEP/2013, 03/APR/2014, 24/SEP/2014, 25/FEB/2015, 17/AUG/201
     Route: 065
     Dates: start: 20121016
  12. VENTOLIN [Concomitant]
     Active Substance: ALBUTEROL SULFATE
     Indication: ASTHMA
     Dosage: 1 SPRAY
     Route: 065
     Dates: start: 20161206
  13. PONSTAN [Concomitant]
     Active Substance: MEFENAMIC ACID
     Indication: INFLUENZA LIKE ILLNESS
     Route: 065
     Dates: start: 200911
  14. ENATEC [Concomitant]
     Active Substance: ENALAPRIL MALEATE
     Route: 065
     Dates: start: 20141128
  15. PLACEBO [Suspect]
     Active Substance: UNSPECIFIED INGREDIENT
     Dosage: WEEK 2
     Route: 042
     Dates: start: 20120511, end: 20120511
  16. OCRELIZUMAB. [Suspect]
     Active Substance: OCRELIZUMAB
     Dosage: OLE-WEEK 2?ADMINISTERED AS 300 MG ON DAY 15 OF CYCLE 5, FOLLOWED BY 600 MG SINGLE INFUSION FOR EACH
     Route: 042
     Dates: start: 20140403, end: 20140403
  17. OCRELIZUMAB. [Suspect]
     Active Substance: OCRELIZUMAB
     Dosage: OLE-WEEK 72
     Route: 042
     Dates: start: 20150817, end: 20150817
  18. OCRELIZUMAB. [Suspect]
     Active Substance: OCRELIZUMAB
     Dosage: OLE-WEEK 144
     Route: 042
     Dates: start: 20161219, end: 20161219
  19. DAFALGAN [Concomitant]
     Active Substance: ACETAMINOPHEN
     Dosage: AS ANALGESIC TREATMENT
     Route: 065
     Dates: start: 20170928
  20. VENTOLIN [Concomitant]
     Active Substance: ALBUTEROL SULFATE
     Indication: ASTHMA
     Dosage: 1 AMPULE
     Route: 065
     Dates: start: 20161229, end: 20170103
  21. PLACEBO [Suspect]
     Active Substance: UNSPECIFIED INGREDIENT
     Dosage: WEEK 72
     Route: 042
     Dates: start: 20130926, end: 20130926
  22. OCRELIZUMAB. [Suspect]
     Active Substance: OCRELIZUMAB
     Dosage: OLE-WEEK 168
     Route: 042
     Dates: start: 20170612, end: 20170612
  23. UROREC [Concomitant]
     Active Substance: SILODOSIN
     Indication: BENIGN PROSTATIC HYPERPLASIA
     Route: 065
     Dates: start: 20171018, end: 20180816
  24. ENATEC [Concomitant]
     Active Substance: ENALAPRIL MALEATE
     Indication: HYPERTENSION
     Route: 065
     Dates: start: 2005, end: 20141127
  25. CONCOR [Concomitant]
     Active Substance: BISOPROLOL FUMARATE
     Route: 065
     Dates: start: 20180430
  26. LYRICA [Concomitant]
     Active Substance: PREGABALIN
     Route: 065
     Dates: start: 20171115, end: 20171126
  27. INTERFERON BETA-1A [Suspect]
     Active Substance: INTERFERON BETA-1A
     Route: 058
     Dates: start: 20120725, end: 20120820
  28. INTERFERON BETA-1A [Suspect]
     Active Substance: INTERFERON BETA-1A
     Route: 058
     Dates: start: 20120919, end: 20121015
  29. OCRELIZUMAB. [Suspect]
     Active Substance: OCRELIZUMAB
     Dosage: OLE-WEEK 48
     Route: 042
     Dates: start: 20150225, end: 20150225
  30. OCRELIZUMAB. [Suspect]
     Active Substance: OCRELIZUMAB
     Dosage: OLE-WEEK 96
     Route: 042
     Dates: start: 20160125, end: 20160125
  31. TRAMADOL-MEPHA [Concomitant]
     Active Substance: TRAMADOL
     Dosage: AS ANALGESIC TREATMENT
     Route: 065
     Dates: start: 20170928
  32. FLUCTINE [Concomitant]
     Active Substance: FLUOXETINE HYDROCHLORIDE
     Indication: FATIGUE
     Route: 065
     Dates: start: 201204
  33. CONCOR [Concomitant]
     Active Substance: BISOPROLOL FUMARATE
     Indication: HYPERTENSION
     Route: 065
     Dates: start: 20131205, end: 20150225
  34. PANTOZOL (SWITZERLAND) [Concomitant]
     Active Substance: PANTOPRAZOLE SODIUM
     Indication: GASTROENTERITIS
     Route: 065
     Dates: start: 200911
  35. LYRICA [Concomitant]
     Active Substance: PREGABALIN
     Indication: NEURALGIA
     Dosage: NEUROPATHIC BOTH FEET PAIN
     Route: 065
     Dates: start: 20171127
  36. TESTOVIRON [Concomitant]
     Active Substance: TESTOSTERONE
     Indication: TESTICULAR DISORDER
     Route: 065
     Dates: start: 1973, end: 20160114
  37. TESTOVIRON [Concomitant]
     Active Substance: TESTOSTERONE
     Route: 065
     Dates: start: 20160114
  38. PLACEBO [Suspect]
     Active Substance: UNSPECIFIED INGREDIENT
     Dosage: WEEK 24
     Route: 042
     Dates: start: 20121016, end: 20121016
  39. PLACEBO [Suspect]
     Active Substance: UNSPECIFIED INGREDIENT
     Dosage: WEEK 48
     Route: 042
     Dates: start: 20130328, end: 20130328
  40. INTERFERON BETA-1A [Suspect]
     Active Substance: INTERFERON BETA-1A
     Indication: RELAPSING-REMITTING MULTIPLE SCLEROSIS
     Route: 058
     Dates: start: 20120423
  41. MONTELUKAST [Concomitant]
     Active Substance: MONTELUKAST SODIUM
     Indication: ASTHMA
     Route: 065
     Dates: start: 20161206
  42. PONSTAN [Concomitant]
     Active Substance: MEFENAMIC ACID
     Indication: MIGRAINE WITH AURA
  43. CONCOR [Concomitant]
     Active Substance: BISOPROLOL FUMARATE
     Route: 065
     Dates: start: 20150817, end: 20160113
  44. CONCOR [Concomitant]
     Active Substance: BISOPROLOL FUMARATE
     Route: 065
     Dates: start: 20160114

REACTIONS (1)
  - Prostate cancer [Recovered/Resolved]

NARRATIVE: CASE EVENT DATE: 20180427
